FAERS Safety Report 17854338 (Version 2)
Quarter: 2020Q2

REPORT INFORMATION
  Report Type: Report from Study
  Country: None (occurrence: US)
  Receive Date: 20200603
  Receipt Date: 20200609
  Transmission Date: 20200714
  Serious: Yes (Other)
  Sender: FDA-Public Use
  Company Number: US-ABBVIE-20K-163-3394213-00

PATIENT
  Age: 37 Year
  Sex: Female

DRUGS (1)
  1. HUMIRA [Suspect]
     Active Substance: ADALIMUMAB
     Indication: ANKYLOSING SPONDYLITIS
     Dosage: CITRATE FREE
     Route: 058
     Dates: start: 20200207, end: 202004

REACTIONS (15)
  - Visual impairment [Not Recovered/Not Resolved]
  - COVID-19 [Recovering/Resolving]
  - Blindness transient [Recovered/Resolved]
  - Bone contusion [Unknown]
  - Pain [Unknown]
  - Injection site haemorrhage [Unknown]
  - Joint range of motion decreased [Unknown]
  - Nasal congestion [Unknown]
  - Headache [Not Recovered/Not Resolved]
  - Joint lock [Unknown]
  - Fall [Unknown]
  - Coccydynia [Unknown]
  - Fatigue [Not Recovered/Not Resolved]
  - Dizziness [Unknown]
  - Laryngitis [Unknown]

NARRATIVE: CASE EVENT DATE: 2020
